FAERS Safety Report 25821386 (Version 1)
Quarter: 2025Q3

REPORT INFORMATION
  Report Type: Report from Study
  Country: CA (occurrence: CA)
  Receive Date: 20250919
  Receipt Date: 20250919
  Transmission Date: 20251021
  Serious: Yes (Death)
  Sender: AMGEN
  Company Number: CA-BEH-2025203148

PATIENT
  Age: 85 Year
  Sex: Female

DRUGS (2)
  1. AVACOPAN [Suspect]
     Active Substance: AVACOPAN
     Indication: Anti-neutrophil cytoplasmic antibody positive vasculitis
     Dosage: 30 MG, BID
     Route: 048
     Dates: start: 20250225
  2. AVACOPAN [Suspect]
     Active Substance: AVACOPAN
     Dosage: 30 MG, BID
     Route: 048
     Dates: start: 20250503

REACTIONS (4)
  - Death [Fatal]
  - Muscle strength abnormal [Unknown]
  - Mobility decreased [Unknown]
  - Intentional underdose [Unknown]

NARRATIVE: CASE EVENT DATE: 20250101
